FAERS Safety Report 5269018-3 (Version None)
Quarter: 2007Q1

REPORT INFORMATION
  Report Type: 
  Country: None (occurrence: None)
  Receive Date: 20070319
  Receipt Date: 20070308
  Transmission Date: 20070707
  Serious: Yes (Hospitalization)
  Sender: FDA-Public Use
  Company Number: GB-JNJFOC-20040603867

PATIENT
  Age: 21 Year
  Sex: Female

DRUGS (1)
  1. IBUPROFEN [Suspect]
     Indication: UNEVALUABLE EVENT

REACTIONS (5)
  - DRUG EXPOSURE DURING PREGNANCY [None]
  - OLIGOHYDRAMNIOS [None]
  - OVERDOSE [None]
  - PLATELET AGGREGATION DECREASED [None]
  - PLATELET DISORDER [None]
